FAERS Safety Report 10250130 (Version 1)
Quarter: 2014Q2

REPORT INFORMATION
  Report Type: Spontaneous
  Country: US (occurrence: US)
  Receive Date: 20140620
  Receipt Date: 20140620
  Transmission Date: 20141212
  Serious: No
  Sender: FDA-Public Use
  Company Number: US-BRISTOL-MYERS SQUIBB COMPANY-20679049

PATIENT
  Age: 72 Year
  Sex: Male
  Weight: 81.63 kg

DRUGS (4)
  1. ELIQUIS [Suspect]
     Indication: CEREBROVASCULAR ACCIDENT PROPHYLAXIS
     Dates: start: 2014, end: 2014
  2. VITAMIN B [Concomitant]
  3. VITAMIN C [Concomitant]
  4. VITAMIN D [Concomitant]

REACTIONS (2)
  - Headache [Unknown]
  - Malaise [Unknown]
